FAERS Safety Report 5298723-8 (Version None)
Quarter: 2007Q2

REPORT INFORMATION
  Report Type: 
  Country: None (occurrence: None)
  Receive Date: 20070417
  Receipt Date: 20070409
  Transmission Date: 20071010
  Serious: Yes (Hospitalization)
  Sender: FDA-Public Use
  Company Number: CA-JNJFOC-20060700576

PATIENT
  Age: 53 Year
  Sex: Male

DRUGS (3)
  1. REMICADE [Suspect]
     Route: 042
  2. REMICADE [Suspect]
     Indication: CROHN'S DISEASE
     Route: 042
  3. STEROIDS [Concomitant]

REACTIONS (10)
  - ACUTE PULMONARY OEDEMA [None]
  - ADHESIOLYSIS [None]
  - CELLULITIS [None]
  - DRUG INEFFECTIVE [None]
  - HAEMOGLOBIN DECREASED [None]
  - NECROTISING FASCIITIS [None]
  - NEPHROLITHIASIS [None]
  - PNEUMOCYSTIS JIROVECI PNEUMONIA [None]
  - PNEUMONIA BACTERIAL [None]
  - SMALL INTESTINAL OBSTRUCTION [None]
